FAERS Safety Report 14152925 (Version 1)
Quarter: 2017Q4

REPORT INFORMATION
  Report Type: Spontaneous
  Country: FR (occurrence: FR)
  Receive Date: 20171102
  Receipt Date: 20171102
  Transmission Date: 20180321
  Serious: Yes (Other)
  Sender: FDA-Public Use
  Company Number: FR-BAYER-2017-207959

PATIENT
  Age: 36 Year
  Sex: Female

DRUGS (1)
  1. MIRENA [Suspect]
     Active Substance: LEVONORGESTREL
     Indication: CONTRACEPTION
     Dosage: 20 MCG/24HR, CONT
     Route: 015
     Dates: start: 20100406, end: 20141208

REACTIONS (7)
  - Hypertrichosis [Recovered/Resolved]
  - Headache [Recovered/Resolved]
  - Alopecia [Recovered/Resolved]
  - Loss of libido [Recovered/Resolved]
  - Abdominal rigidity [Recovered/Resolved]
  - Back pain [Recovered/Resolved]
  - Irritability [Recovered/Resolved]

NARRATIVE: CASE EVENT DATE: 2010
